FAERS Safety Report 21812344 (Version 1)
Quarter: 2023Q1

REPORT INFORMATION
  Report Type: Spontaneous
  Country: ES (occurrence: ES)
  Receive Date: 20230103
  Receipt Date: 20230103
  Transmission Date: 20230417
  Serious: Yes (Other)
  Sender: FDA-Public Use
  Company Number: ES-INSUD PHARMA-2212ES05695

PATIENT

DRUGS (1)
  1. TESTOSTERONE [Suspect]
     Active Substance: TESTOSTERONE
     Indication: Gender reassignment therapy
     Dosage: UNK
     Route: 065

REACTIONS (2)
  - Suicide attempt [Recovered/Resolved]
  - Suicidal behaviour [Recovered/Resolved]
